FAERS Safety Report 12381765 (Version 2)
Quarter: 2016Q3

REPORT INFORMATION
  Report Type: Spontaneous
  Country: FR (occurrence: FR)
  Receive Date: 20160518
  Receipt Date: 20160805
  Transmission Date: 20161109
  Serious: Yes (Death, Life-Threatening, Hospitalization, Other)
  Sender: FDA-Public Use
  Company Number: FR-GLAXOSMITHKLINE-FR2016GSK065827

PATIENT
  Age: 57 Year
  Sex: Male

DRUGS (4)
  1. DOLIPRANE [Concomitant]
     Active Substance: ACETAMINOPHEN
     Indication: BRONCHITIS
     Dosage: 1000 MG, TID
     Route: 048
     Dates: start: 20160327, end: 20160331
  2. NUROFEN [Suspect]
     Active Substance: IBUPROFEN
     Indication: BRONCHITIS
     Dosage: 400 MG, 6D
     Route: 048
     Dates: start: 20160327, end: 20160331
  3. ZINNAT [Suspect]
     Active Substance: CEFUROXIME AXETIL
     Indication: BRONCHITIS
     Dosage: 500 MG, BID
     Route: 048
     Dates: start: 20160327, end: 20160331
  4. PREDNISONE. [Suspect]
     Active Substance: PREDNISONE
     Indication: BRONCHITIS
     Dosage: 20 MG, TID
     Route: 048
     Dates: start: 20160327, end: 20160331

REACTIONS (3)
  - Acute kidney injury [Not Recovered/Not Resolved]
  - Lung disorder [Fatal]
  - Septic shock [Fatal]

NARRATIVE: CASE EVENT DATE: 20160331
